FAERS Safety Report 17602754 (Version 10)
Quarter: 2024Q3

REPORT INFORMATION
  Report Type: Report from Study
  Country: JP (occurrence: JP)
  Receive Date: 20200330
  Receipt Date: 20240713
  Transmission Date: 20241017
  Serious: Yes (Hospitalization)
  Sender: ABBVIE
  Company Number: JP-ABBVIE-18K-087-2424631-00

PATIENT
  Age: 57 Year
  Sex: Female

DRUGS (6)
  1. CARBIDOPA\LEVODOPA [Suspect]
     Active Substance: CARBIDOPA\LEVODOPA
     Indication: Parkinson^s disease
     Dosage: MD 7.4ML; CD 3.0ML/HRS; ED 1.0ML ? 4 TIMES
     Route: 050
     Dates: start: 20141007
  2. CARBIDOPA\LEVODOPA [Suspect]
     Active Substance: CARBIDOPA\LEVODOPA
     Dosage: MD 7.4ML; CD 3.0ML ? 16HRS; ED 1.0ML ? 4 TIMES
     Route: 050
     Dates: start: 20160917, end: 20170809
  3. CARBIDOPA\LEVODOPA [Suspect]
     Active Substance: CARBIDOPA\LEVODOPA
     Dosage: MD 7.4 ML; CD 3.2 ML/HRS ? 16 HRS; ED 0.8 ML/UNIT ? 4 TIMES
     Route: 050
     Dates: start: 20170809, end: 2023
  4. CARBIDOPA\LEVODOPA [Concomitant]
     Active Substance: CARBIDOPA\LEVODOPA
     Indication: Parkinson^s disease
     Dosage: CARBIDOPA HYDRATE LEVODOPA MIXTURE
     Route: 048
  5. PRAMIPEXOLE [Concomitant]
     Active Substance: PRAMIPEXOLE\PRAMIPEXOLE DIHYDROCHLORIDE
     Indication: Parkinson^s disease
     Route: 048
     Dates: start: 20170202
  6. METHYLCOBALAMIN [Concomitant]
     Active Substance: METHYLCOBALAMIN
     Indication: Prophylaxis
     Route: 048

REACTIONS (28)
  - Urinary tract infection [Unknown]
  - Sepsis [Unknown]
  - Immunodeficiency [Unknown]
  - Hospitalisation [Unknown]
  - Anaesthetic complication [Unknown]
  - Device difficult to use [Unknown]
  - Device occlusion [Recovered/Resolved]
  - Device occlusion [Recovered/Resolved]
  - Device occlusion [Recovered/Resolved]
  - Device occlusion [Recovered/Resolved]
  - Device dislocation [Not Recovered/Not Resolved]
  - Somnolence [Unknown]
  - Malaise [Unknown]
  - Dyskinesia [Not Recovered/Not Resolved]
  - Stoma site infection [Recovered/Resolved]
  - Device alarm issue [Unknown]
  - Stoma site pain [Unknown]
  - Constipation [Unknown]
  - On and off phenomenon [Unknown]
  - Peripheral coldness [Unknown]
  - Therapeutic product effect incomplete [Unknown]
  - Hypoaesthesia [Unknown]
  - Night sweats [Not Recovered/Not Resolved]
  - Mobility decreased [Unknown]
  - Hypoaesthesia [Unknown]
  - Fatigue [Unknown]
  - Mobility decreased [Unknown]
  - Freezing phenomenon [Unknown]

NARRATIVE: CASE EVENT DATE: 20160930
